FAERS Safety Report 10165123 (Version 1)
Quarter: 2014Q2

REPORT INFORMATION
  Report Type: Spontaneous
  Country: US (occurrence: US)
  Receive Date: 20140510
  Receipt Date: 20140510
  Transmission Date: 20141212
  Serious: No
  Sender: FDA-Public Use
  Company Number: US-BRISTOL-MYERS SQUIBB COMPANY-20287264

PATIENT
  Age: 37 Year
  Sex: Male
  Weight: 106.57 kg

DRUGS (6)
  1. BYDUREON [Suspect]
     Dates: start: 2014
  2. VITAMIN D [Concomitant]
  3. GLIPIZIDE [Concomitant]
  4. MELOXICAM [Concomitant]
  5. CRESTOR [Concomitant]
  6. SYNTHROID [Concomitant]

REACTIONS (2)
  - Injection site nodule [Recovering/Resolving]
  - Nasopharyngitis [Unknown]
